FAERS Safety Report 13477588 (Version 1)
Quarter: 2017Q2

REPORT INFORMATION
  Report Type: Spontaneous
  Country: SA (occurrence: US)
  Receive Date: 20170425
  Receipt Date: 20170425
  Transmission Date: 20170830
  Serious: Yes (Other)
  Sender: FDA-Public Use
  Company Number: None

PATIENT
  Age: 24 Year
  Sex: Male
  Weight: 66.4 kg

DRUGS (2)
  1. IMIPENEM-CILASTATIN [Suspect]
     Active Substance: CILASTATIN SODIUM\IMIPENEM
     Route: 042
     Dates: start: 20161226, end: 20161227
  2. NONE [Suspect]
     Active Substance: UNSPECIFIED INGREDIENT

REACTIONS (3)
  - Seizure [None]
  - Cerebral thrombosis [None]
  - Metastases to bone [None]

NARRATIVE: CASE EVENT DATE: 20161226
